FAERS Safety Report 6980810-7 (Version None)
Quarter: 2010Q3

REPORT INFORMATION
  Report Type: 
  Country: None (occurrence: None)
  Receive Date: 20100914
  Receipt Date: 20100902
  Transmission Date: 20110219
  Serious: Yes (Other)
  Sender: FDA-Public Use
  Company Number: SE-PFIZER INC-2010111322

PATIENT
  Age: 84 Year
  Sex: Male

DRUGS (3)
  1. LYRICA [Suspect]
     Indication: NEURALGIA
     Dosage: 150 MG, 2X/DAY
     Dates: start: 20060101
  2. NEXIUM [Concomitant]
     Dosage: UNK
  3. GLUCOSAMINE [Concomitant]
     Dosage: UNK

REACTIONS (13)
  - ABDOMINAL DISTENSION [None]
  - BACK PAIN [None]
  - HYPERACUSIS [None]
  - HYPERTENSION [None]
  - MEMORY IMPAIRMENT [None]
  - MUSCULAR WEAKNESS [None]
  - OEDEMA PERIPHERAL [None]
  - PELVIC PAIN [None]
  - PRURITUS GENERALISED [None]
  - RASH [None]
  - RENAL PAIN [None]
  - SENSORY LOSS [None]
  - SKIN ULCER [None]
